FAERS Safety Report 16397351 (Version 4)
Quarter: 2020Q4

REPORT INFORMATION
  Report Type: Spontaneous
  Country: US (occurrence: US)
  Receive Date: 20190606
  Receipt Date: 20201124
  Transmission Date: 20210113
  Serious: Yes (Hospitalization)
  Sender: FDA-Public Use
  Company Number: US-GLAXOSMITHKLINE-US2019AMR084973

PATIENT
  Sex: Female

DRUGS (1)
  1. BENLYSTA [Suspect]
     Active Substance: BELIMUMAB
     Indication: SYSTEMIC LUPUS ERYTHEMATOSUS
     Dosage: UNK, WE, 200 MG/ML
     Route: 065

REACTIONS (4)
  - Muscle twitching [Unknown]
  - Atypical pneumonia [Unknown]
  - Restlessness [Unknown]
  - Product dose omission issue [Unknown]
